FAERS Safety Report 6047359-X (Version None)
Quarter: 2009Q1

REPORT INFORMATION
  Report Type: 
  Country: None (occurrence: None)
  Receive Date: 20090122
  Receipt Date: 20090108
  Transmission Date: 20090719
  Serious: Yes (Other)
  Sender: FDA-Public Use
  Company Number: US-GENENTECH-275278

PATIENT

DRUGS (2)
  1. BEVACIZUMAB [Suspect]
     Indication: METASTATIC RENAL CELL CARCINOMA
     Dosage: 10 MG/KG, UNK
     Route: 042
  2. INTRON [Suspect]
     Indication: METASTATIC RENAL CELL CARCINOMA
     Dosage: 3 MIU, 3/WEEK
     Route: 058

REACTIONS (2)
  - LUNG INFILTRATION [None]
  - PNEUMONITIS [None]
